FAERS Safety Report 18304036 (Version 1)
Quarter: 2020Q3

REPORT INFORMATION
  Report Type: Spontaneous
  Country: US (occurrence: US)
  Receive Date: 20200923
  Receipt Date: 20200923
  Transmission Date: 20201103
  Serious: Yes (Other)
  Sender: FDA-Public Use
  Company Number: US-BIOMARINAP-US-2020-132302

PATIENT
  Age: 26 Year
  Sex: Male

DRUGS (2)
  1. PALYNZIQ [Suspect]
     Active Substance: PEGVALIASE-PQPZ
     Dosage: UNK
     Route: 058
     Dates: start: 20190423
  2. PALYNZIQ [Suspect]
     Active Substance: PEGVALIASE-PQPZ
     Indication: PHENYLKETONURIA
     Dosage: 40 MILLIGRAM, QD
     Route: 058

REACTIONS (5)
  - Palpitations [Recovered/Resolved]
  - Dyspnoea [Recovered/Resolved]
  - Throat tightness [Recovered/Resolved]
  - Heart rate increased [Recovered/Resolved]
  - Anxiety [Recovered/Resolved]

NARRATIVE: CASE EVENT DATE: 20200910
